FAERS Safety Report 4749479-6 (Version None)
Quarter: 2005Q3

REPORT INFORMATION
  Report Type: 
  Country: None (occurrence: None)
  Receive Date: 20050822
  Receipt Date: 20050127
  Transmission Date: 20060218
  Serious: Yes (Hospitalization)
  Sender: FDA-Public Use
  Company Number: 2005AP00617

PATIENT
  Age: 27556 Day
  Sex: Male
  Weight: 53 kg

DRUGS (12)
  1. DIPRIVAN [Suspect]
     Indication: SEDATION
     Route: 042
     Dates: start: 20050105, end: 20050107
  2. DIPRIVAN [Suspect]
     Dosage: ADJUSTED BETWEEN 50 MG/HR AND 125 MG/HR
     Route: 042
     Dates: start: 20050107, end: 20050125
  3. SOLU-MEDROL [Concomitant]
     Indication: ASTHMA
     Route: 042
     Dates: start: 20050105
  4. NEOPHYLLIN INJECTION [Concomitant]
     Indication: ASTHMA
     Route: 042
     Dates: start: 20050105, end: 20050114
  5. FULCALIQ [Concomitant]
     Indication: NUTRITIONAL SUPPORT
     Route: 042
     Dates: start: 20050105
  6. ELEMENMIC [Concomitant]
     Indication: NUTRITIONAL SUPPORT
     Route: 042
     Dates: start: 20050105
  7. GASTER [Concomitant]
     Indication: PROPHYLAXIS AGAINST GASTROINTESTINAL ULCER
     Route: 042
     Dates: start: 20050105, end: 20050116
  8. PANSPORIN [Concomitant]
     Route: 041
     Dates: start: 20050107, end: 20050112
  9. ALLOID G [Concomitant]
     Dates: start: 20050107, end: 20050125
  10. PREDONINE [Concomitant]
     Dosage: 20 - 120 MG
     Route: 041
     Dates: start: 20050107, end: 20050209
  11. HOKUNALIN :TAPE [Concomitant]
     Dates: start: 20050107
  12. OMEPRAZOLE [Concomitant]
     Route: 041
     Dates: start: 20050116, end: 20050214

REACTIONS (1)
  - DELAYED RECOVERY FROM ANAESTHESIA [None]
